FAERS Safety Report 7792467-6 (Version None)
Quarter: 2011Q4

REPORT INFORMATION
  Report Type: 
  Country: None (occurrence: None)
  Receive Date: 20111003
  Receipt Date: 20110920
  Transmission Date: 20120403
  Serious: Yes (Other)
  Sender: FDA-Public Use
  Company Number: US-ELI_LILLY_AND_COMPANY-US201106002090

PATIENT
  Sex: Female
  Weight: 56.236 kg

DRUGS (8)
  1. CENTRUM SILVER [Concomitant]
     Dosage: UNK, QD
  2. VITAMIN D [Concomitant]
  3. ASCORBIC ACID [Concomitant]
  4. ZOLOFT [Concomitant]
  5. FORTEO [Suspect]
     Indication: OSTEOPOROSIS
     Dosage: 20 UG, QD
     Route: 058
     Dates: start: 20110208
  6. TYLENOL                                 /SCH/ [Concomitant]
  7. CALCIUM CARBONATE [Concomitant]
     Dosage: 1 DF, QD
  8. VITAMIN B12 PLUS FOLIC ACID [Concomitant]

REACTIONS (1)
  - THROMBOSIS [None]
